FAERS Safety Report 16177317 (Version 2)
Quarter: 2019Q2

REPORT INFORMATION
  Report Type: Spontaneous
  Country: CA (occurrence: CA)
  Receive Date: 20190410
  Receipt Date: 20190523
  Transmission Date: 20190711
  Serious: Yes (Other)
  Sender: FDA-Public Use
  Company Number: CA-CELLTRION INC.-2019CA018509

PATIENT

DRUGS (6)
  1. INFLECTRA [Suspect]
     Active Substance: INFLIXIMAB-DYYB
     Indication: PSORIASIS
     Dosage: 5 MG/KG,0, 2, 6 WEEKS,THEN EVERY 8 WEEKS
     Route: 041
     Dates: start: 20181206
  2. INFLECTRA [Suspect]
     Active Substance: INFLIXIMAB-DYYB
     Dosage: 5 MG/KG,0, 2, 6 WEEKS,THEN EVERY 8 WEEKS
     Route: 041
     Dates: start: 20190116
  3. INFLECTRA [Suspect]
     Active Substance: INFLIXIMAB-DYYB
     Dosage: 5 MG/KG,0, 2, 6 WEEKS,THEN EVERY 8 WEEKS
     Route: 041
     Dates: start: 20190315
  4. INFLECTRA [Suspect]
     Active Substance: INFLIXIMAB-DYYB
     Dosage: 5 MG/KG,0, 2, 6 WEEKS,THEN EVERY 8 WEEKS
     Route: 041
     Dates: start: 20190509
  5. METHOTREXATE SODIUM. [Suspect]
     Active Substance: METHOTREXATE SODIUM
     Dosage: UNK
     Route: 065
     Dates: start: 20181119
  6. INFLECTRA [Suspect]
     Active Substance: INFLIXIMAB-DYYB
     Dosage: 5 MG/KG,0, 2, 6 WEEKS,THEN EVERY 8 WEEKS
     Route: 041
     Dates: start: 20181219

REACTIONS (5)
  - Pruritus [Unknown]
  - Paraesthesia [Unknown]
  - Skin plaque [Unknown]
  - Cataract [Unknown]
  - Cough [Unknown]

NARRATIVE: CASE EVENT DATE: 20190219
